FAERS Safety Report 15979974 (Version 2)
Quarter: 2019Q1

REPORT INFORMATION
  Report Type: Spontaneous
  Country: GB (occurrence: GB)
  Receive Date: 20190219
  Receipt Date: 20190315
  Transmission Date: 20190418
  Serious: Yes (Hospitalization)
  Sender: FDA-Public Use
  Company Number: GB-ACCORD-107981

PATIENT
  Age: 88 Year
  Sex: Male
  Weight: 74 kg

DRUGS (10)
  1. VALPROIC ACID. [Suspect]
     Active Substance: VALPROIC ACID
     Indication: PARTIAL SEIZURES
     Dosage: CUMULATIVE DOSE TO FIRST REACTION: 4800 MG
     Route: 042
     Dates: start: 20180621, end: 20180629
  2. TAMSULOSIN [Concomitant]
     Active Substance: TAMSULOSIN
  3. FENTANYL. [Concomitant]
     Active Substance: FENTANYL
  4. LEVETIRACETAM. [Suspect]
     Active Substance: LEVETIRACETAM
     Indication: SEIZURE
     Route: 042
     Dates: start: 20180629
  5. LEVOTHYROXINE. [Concomitant]
     Active Substance: LEVOTHYROXINE
  6. PARACETAMOL [Concomitant]
     Active Substance: ACETAMINOPHEN
  7. DEXAMETHASONE. [Concomitant]
     Active Substance: DEXAMETHASONE
  8. FINASTERIDE. [Concomitant]
     Active Substance: FINASTERIDE
  9. GABAPENTIN. [Concomitant]
     Active Substance: GABAPENTIN
  10. OTOMIZE [Concomitant]
     Active Substance: DEXAMETHASONE\NEOMYCIN SULFATE

REACTIONS (2)
  - Skin ulcer [Not Recovered/Not Resolved]
  - Blister [Not Recovered/Not Resolved]

NARRATIVE: CASE EVENT DATE: 20180629
